FAERS Safety Report 4598819-X (Version None)
Quarter: 2005Q1

REPORT INFORMATION
  Report Type: 
  Country: None (occurrence: None)
  Receive Date: 20050301
  Receipt Date: 20050214
  Transmission Date: 20050727
  Serious: Yes (Other)
  Sender: FDA-Public Use
  Company Number: 2005032765

PATIENT
  Sex: Male
  Weight: 95.2554 kg

DRUGS (10)
  1. CELEBREX [Suspect]
     Indication: ARTHRALGIA
     Dosage: SEE IMAGE
     Route: 048
  2. DILTIAZEM HYDROCHLORIDE [Concomitant]
  3. BUPROPION HYDROCHLORIDE [Concomitant]
  4. VITAMIN B (VITAMIN B) [Concomitant]
  5. CYANOCOBALAMIN [Concomitant]
  6. LIPITOR [Concomitant]
  7. METFORMIN HCL [Concomitant]
  8. FUROSEMIDE [Concomitant]
  9. PIOGLITAZONE HCL [Concomitant]
  10. LEVOTHYROXINE SODIUM [Concomitant]

REACTIONS (3)
  - BENIGN PROSTATIC HYPERPLASIA [None]
  - CATARACT [None]
  - PROSTATE CANCER [None]
